FAERS Safety Report 5212928-3 (Version None)
Quarter: 2007Q1

REPORT INFORMATION
  Report Type: 
  Country: None (occurrence: None)
  Receive Date: 20070117
  Receipt Date: 20070103
  Transmission Date: 20070707
  Serious: Yes (Hospitalization)
  Sender: FDA-Public Use
  Company Number: 1-14520417

PATIENT
  Age: 17 Year
  Sex: Male
  Weight: 74.3 kg

DRUGS (2)
  1. SULFAMETHOXAZOLE AND TRIMETHOPRIM [Suspect]
     Indication: ACNE
     Dosage: 1 TABLET, TWICE DAILY, ORAL
     Route: 048
     Dates: start: 20060901, end: 20061130
  2. DOXYCYCLINE [Suspect]
     Indication: ACNE
     Dosage: 100 MG, TWICE DAILY, ORAL
     Route: 048
     Dates: start: 20061130, end: 20061208

REACTIONS (8)
  - DEEP VEIN THROMBOSIS [None]
  - DRUG INEFFECTIVE [None]
  - IRON DEFICIENCY [None]
  - NEUTROPHIL COUNT INCREASED [None]
  - OEDEMA PERIPHERAL [None]
  - PAIN IN EXTREMITY [None]
  - PLATELET COUNT INCREASED [None]
  - RED CELL DISTRIBUTION WIDTH INCREASED [None]
